FAERS Safety Report 8644629 (Version 4)
Quarter: 2014Q2

REPORT INFORMATION
  Report Type: Spontaneous
  Country: US (occurrence: US)
  Receive Date: 20120630
  Receipt Date: 20140402
  Transmission Date: 20141212
  Serious: Yes (Disabling)
  Sender: FDA-Public Use
  Company Number: US-ASTRAZENECA-2012SE34605

PATIENT
  Sex: Female
  Weight: 104.3 kg

DRUGS (30)
  1. NEXIUM [Suspect]
     Indication: GASTROOESOPHAGEAL REFLUX DISEASE
     Dosage: ONCE DAILY
     Route: 048
     Dates: start: 1996, end: 2012
  2. NEXIUM [Suspect]
     Indication: GASTROOESOPHAGEAL REFLUX DISEASE
     Route: 048
     Dates: start: 20080131
  3. PRILOSEC [Suspect]
     Dosage: ONCE DAILY
     Route: 048
     Dates: start: 1992, end: 1994
  4. PRILOSEC [Suspect]
     Route: 048
     Dates: start: 20081217
  5. PREVACID [Concomitant]
     Dosage: ONCE DAILY
     Dates: start: 1990, end: 1992
  6. ACIPHEX [Concomitant]
     Dosage: ONCE DAILY
     Dates: start: 1994, end: 1996
  7. PANTOPRAZOLE [Concomitant]
     Dosage: ONCE DAILY
     Dates: start: 2007, end: 2012
  8. ZANTAC [Concomitant]
     Dosage: TWICE DAILY
     Dates: start: 2006
  9. RANITIDINE [Concomitant]
     Dosage: TWICE DAILY
     Dates: start: 2006
  10. PEPCID [Concomitant]
     Dosage: TWICE DAILY
  11. ALKA-SELTZER [Concomitant]
  12. MYLANTA [Concomitant]
  13. ROLAIDS [Concomitant]
  14. METFORMIN [Concomitant]
     Indication: DIABETES MELLITUS
  15. ACTOS [Concomitant]
     Indication: DIABETES MELLITUS
  16. VICTOZA [Concomitant]
     Indication: DIABETES MELLITUS
  17. LOSARTAN POTASSIUM [Concomitant]
     Indication: HYPERTENSION
  18. NORVASC [Concomitant]
     Indication: HYPERTENSION
  19. TRAMADOL [Concomitant]
     Indication: PAIN
  20. KLONOPIN [Concomitant]
     Indication: NERVOUS SYSTEM DISORDER
  21. MIRTAZAPINE [Concomitant]
     Indication: NERVOUS SYSTEM DISORDER
  22. ARICEPT [Concomitant]
     Indication: MEMORY IMPAIRMENT
  23. ELAVIL [Concomitant]
     Indication: NERVOUS SYSTEM DISORDER
  24. SUCRALFATE [Concomitant]
     Indication: ULCER
     Dosage: 4 TIMES DAILY
  25. AVAPRO [Concomitant]
  26. AMITRIPTYLIN [Concomitant]
     Dates: start: 20080131
  27. IBUPROFEN [Concomitant]
     Dates: start: 20080225
  28. FLEXERIL [Concomitant]
     Dates: start: 20080630
  29. DIFLUCAN [Concomitant]
     Dates: start: 20080226
  30. VOLTAREN [Concomitant]

REACTIONS (6)
  - Intervertebral disc degeneration [Unknown]
  - Osteoporosis [Unknown]
  - Ankle fracture [Unknown]
  - Arthritis [Unknown]
  - Diabetes mellitus [Unknown]
  - Depression [Unknown]
